FAERS Safety Report 7874970-3 (Version None)
Quarter: 2011Q4

REPORT INFORMATION
  Report Type: 
  Country: None (occurrence: None)
  Receive Date: 20111003
  Receipt Date: 20110815
  Transmission Date: 20120403
  Serious: Yes (Other)
  Sender: FDA-Public Use
  Company Number: 296612USA

PATIENT
  Sex: Female

DRUGS (1)
  1. VENLAFAXINE [Suspect]
     Dosage: 150 MG

REACTIONS (4)
  - WITHDRAWAL SYNDROME [None]
  - HEADACHE [None]
  - FEELING ABNORMAL [None]
  - NERVOUSNESS [None]
